FAERS Safety Report 6809436-2 (Version None)
Quarter: 2010Q2

REPORT INFORMATION
  Report Type: 
  Country: None (occurrence: None)
  Receive Date: 20100630
  Receipt Date: 20100621
  Transmission Date: 20101027
  Serious: Yes (Other)
  Sender: FDA-Public Use
  Company Number: CA-ASTRAZENECA-2010SE29178

PATIENT
  Age: 29 Year
  Sex: Male
  Weight: 69.4 kg

DRUGS (3)
  1. SEROQUEL XR [Suspect]
     Route: 048
  2. SEROQUEL XR [Suspect]
     Route: 048
  3. TOPAMAX [Concomitant]

REACTIONS (12)
  - ANXIETY [None]
  - ASTHENIA [None]
  - CHEST PAIN [None]
  - DRY THROAT [None]
  - DYSPNOEA [None]
  - FEAR OF DEATH [None]
  - HYPERVENTILATION [None]
  - HYPOTENSION [None]
  - INSOMNIA [None]
  - NASAL CONGESTION [None]
  - RESTLESS LEGS SYNDROME [None]
  - TACHYCARDIA [None]
